FAERS Safety Report 9979974 (Version 2)
Quarter: 2014Q2

REPORT INFORMATION
  Report Type: Spontaneous
  Country: BR (occurrence: BR)
  Receive Date: 20140306
  Receipt Date: 20140407
  Transmission Date: 20141212
  Serious: Yes (Other)
  Sender: FDA-Public Use
  Company Number: BR-ROCHE-1359503

PATIENT
  Age: 60 Year
  Sex: Female

DRUGS (8)
  1. RITUXIMAB [Suspect]
     Indication: DIFFUSE LARGE B-CELL LYMPHOMA
     Route: 065
     Dates: start: 200811, end: 200906
  2. CYCLOPHOSPHAMIDE [Suspect]
     Indication: DIFFUSE LARGE B-CELL LYMPHOMA
     Route: 065
     Dates: start: 200811, end: 200906
  3. HYDROXYDAUNORUBICIN [Suspect]
     Indication: DIFFUSE LARGE B-CELL LYMPHOMA
     Route: 065
     Dates: start: 200811, end: 200906
  4. VINCRISTINE [Suspect]
     Indication: DIFFUSE LARGE B-CELL LYMPHOMA
     Route: 065
     Dates: start: 200811, end: 200906
  5. PREDNISONE [Suspect]
     Indication: DIFFUSE LARGE B-CELL LYMPHOMA
     Route: 065
     Dates: start: 200811, end: 200906
  6. FUROSEMIDE [Concomitant]
  7. CAPTOPRIL [Concomitant]
  8. PROPRANOLOL [Concomitant]

REACTIONS (2)
  - Cardiotoxicity [Unknown]
  - Hodgkin^s disease mixed cellularity stage unspecified [Unknown]
